FAERS Safety Report 9255434 (Version 1)
Quarter: 2013Q2

REPORT INFORMATION
  Report Type: Spontaneous
  Country: US (occurrence: None)
  Receive Date: 20130418
  Receipt Date: 20130418
  Transmission Date: 20140414
  Serious: Yes (Other)
  Sender: FDA-Public Use
  Company Number: HA13-112-AE

PATIENT
  Age: 18 Year
  Sex: Male
  Weight: 77.11 kg

DRUGS (1)
  1. SULFAMETHOXAZOLE/TRIMETHOPRIM [Suspect]
     Indication: ACNE
     Dosage: 1 TABLET PER DAY, ORAL
     Route: 048
     Dates: start: 20130315, end: 20130329

REACTIONS (15)
  - Hyperhidrosis [None]
  - Vomiting [None]
  - Ocular hyperaemia [None]
  - Pain [None]
  - Dysphagia [None]
  - Rash [None]
  - Constipation [None]
  - Urticaria [None]
  - Heart rate increased [None]
  - Arthralgia [None]
  - Gingival inflammation [None]
  - Gingival bleeding [None]
  - Headache [None]
  - Myalgia [None]
  - Dysuria [None]
